APPROVED DRUG PRODUCT: VISKAZIDE
Active Ingredient: HYDROCHLOROTHIAZIDE; PINDOLOL
Strength: 25MG;5MG
Dosage Form/Route: TABLET;ORAL
Application: N018872 | Product #001
Applicant: NOVARTIS PHARMACEUTICALS CORP
Approved: Jul 22, 1987 | RLD: No | RS: No | Type: DISCN